FAERS Safety Report 4832769-6 (Version None)
Quarter: 2005Q4

REPORT INFORMATION
  Report Type: 
  Country: None (occurrence: None)
  Receive Date: 20051121
  Receipt Date: 20040430
  Transmission Date: 20060501
  Serious: Yes (Other)
  Sender: FDA-Public Use
  Company Number: 2004UW08973

PATIENT
  Age: 65 Year
  Sex: Female
  Weight: 145.5 kg

DRUGS (9)
  1. ARIMIDEX [Suspect]
     Indication: BREAST CANCER
  2. ANTI-INFLAMMATORIES [Concomitant]
  3. FOSAMAX [Concomitant]
  4. ZESTRIL [Concomitant]
     Indication: HYPERTENSION
  5. DYAZIDE [Concomitant]
  6. BEXTRA [Concomitant]
     Indication: ARTHRITIS
  7. CLARINEX [Concomitant]
     Indication: SINUS DISORDER
  8. CENTRUM SILVER [Concomitant]
  9. ASCORBIC ACID [Concomitant]

REACTIONS (4)
  - BACK PAIN [None]
  - GASTROINTESTINAL DISORDER [None]
  - OSTEOARTHRITIS [None]
  - ULCER HAEMORRHAGE [None]
